FAERS Safety Report 23677308 (Version 1)
Quarter: 2024Q1

REPORT INFORMATION
  Report Type: Spontaneous
  Country: US (occurrence: US)
  Receive Date: 20240327
  Receipt Date: 20240327
  Transmission Date: 20240410
  Serious: Yes (Other)
  Sender: FDA-Public Use
  Company Number: US-SANOFI-01962794

PATIENT
  Age: 78 Year
  Sex: Male

DRUGS (3)
  1. LANTUS SOLOSTAR [Suspect]
     Active Substance: INSULIN GLARGINE
     Indication: Type 2 diabetes mellitus
     Dosage: 26 IU, QD
  2. METFORMIN [Concomitant]
     Active Substance: METFORMIN HYDROCHLORIDE
     Dosage: UNK
  3. NOVOLOG [Concomitant]
     Active Substance: INSULIN ASPART

REACTIONS (3)
  - Cerebral haemorrhage [Unknown]
  - Fall [Unknown]
  - Renal disorder [Unknown]
